FAERS Safety Report 15550713 (Version 1)
Quarter: 2018Q4

REPORT INFORMATION
  Report Type: Spontaneous
  Country: US (occurrence: US)
  Receive Date: 20181019
  Receipt Date: 20181019
  Transmission Date: 20190205
  Serious: No
  Sender: FDA-Public Use
  Company Number: None

PATIENT
  Age: 68 Year
  Sex: Male

DRUGS (1)
  1. ACTHAR [Suspect]
     Active Substance: CORTICOTROPIN
     Dates: start: 201807

REACTIONS (3)
  - Regurgitation [None]
  - Condition aggravated [None]
  - Device failure [None]

NARRATIVE: CASE EVENT DATE: 20180808
